FAERS Safety Report 13647122 (Version 1)
Quarter: 2017Q2

REPORT INFORMATION
  Report Type: Spontaneous
  Country: JP (occurrence: JP)
  Receive Date: 20170613
  Receipt Date: 20170613
  Transmission Date: 20170830
  Serious: Yes (Other)
  Sender: FDA-Public Use
  Company Number: JP-MYLANLABS-2017M1034644

PATIENT

DRUGS (3)
  1. EDOXABAN [Interacting]
     Active Substance: EDOXABAN TOSYLATE
     Indication: ANTICOAGULANT THERAPY
     Dosage: 15.0 MG/DAY
     Route: 048
  2. OXALIPLATIN. [Suspect]
     Active Substance: OXALIPLATIN
     Indication: GASTRIC CANCER STAGE IV
     Dosage: 100.0 MG/M2
     Route: 065
  3. GIMERACIL W/OTERACIL POTASSIUM/TEGAFUR [Interacting]
     Active Substance: GIMERACIL\OTERACIL\TEGAFUR
     Indication: GASTRIC CANCER STAGE IV
     Dosage: 80.0 MG/M2
     Route: 065

REACTIONS (2)
  - Drug interaction [Recovered/Resolved]
  - Ischaemic stroke [Recovered/Resolved]
